FAERS Safety Report 23074681 (Version 4)
Quarter: 2024Q1

REPORT INFORMATION
  Report Type: Spontaneous
  Country: US (occurrence: US)
  Receive Date: 20231017
  Receipt Date: 20240321
  Transmission Date: 20240410
  Serious: No
  Sender: FDA-Public Use
  Company Number: US-MYLANLABS-2023M1108249

PATIENT
  Age: 56 Year
  Sex: Female
  Weight: 83.91 kg

DRUGS (12)
  1. EFFEXOR XR EXTENDED-RELEASE [Suspect]
     Active Substance: VENLAFAXINE HYDROCHLORIDE
     Indication: Depression
     Dosage: 150 MILLIGRAM, BID (6:30AM IN THE MORNING AND 6:30 EVENING)
     Route: 065
     Dates: start: 20231122, end: 20231129
  2. EFFEXOR XR EXTENDED-RELEASE [Suspect]
     Active Substance: VENLAFAXINE HYDROCHLORIDE
     Dosage: 150 MILLIGRAM
     Route: 065
  3. OREGANO LEAF OIL [Concomitant]
     Active Substance: OREGANO LEAF OIL
     Indication: Cough
     Dosage: UNK
     Route: 065
  4. ZINC [Concomitant]
     Active Substance: PYRITHIONE ZINC\ZINC\ZINC CHLORIDE
     Indication: Cough
     Dosage: UNK
     Route: 065
  5. BENZTROPINE [Concomitant]
     Active Substance: BENZTROPINE
     Dosage: 1 MILLIGRAM
     Route: 065
  6. LISINOPRIL [Concomitant]
     Active Substance: LISINOPRIL
     Dosage: 5 MILLIGRAM
     Route: 065
  7. LITHIUM CARBONATE [Concomitant]
     Active Substance: LITHIUM CARBONATE
     Dosage: UNK (450X52)
     Route: 065
  8. LUNESTA [Concomitant]
     Active Substance: ESZOPICLONE
     Dosage: 3 MILLIGRAM
     Route: 065
  9. METFORMIN [Concomitant]
     Active Substance: METFORMIN HYDROCHLORIDE
     Dosage: UNK (1000XS2 MILLIGRAM)
     Route: 065
  10. FENOFIBRATE [Concomitant]
     Active Substance: FENOFIBRATE
     Dosage: 145 MILLIGRAM
     Route: 065
  11. SIMVASTATIN [Concomitant]
     Active Substance: SIMVASTATIN
     Dosage: 20 MILLIGRAM
     Route: 065
  12. PIOGLITAZONE [Concomitant]
     Active Substance: PIOGLITAZONE
     Dosage: 15 MILLIGRAM
     Route: 065

REACTIONS (9)
  - Amnesia [Unknown]
  - Disturbance in attention [Unknown]
  - Paranoia [Unknown]
  - Therapeutic product effect variable [Unknown]
  - Tension headache [Unknown]
  - Diarrhoea [Unknown]
  - Insomnia [Unknown]
  - Product quality issue [Unknown]
  - Drug ineffective [Unknown]

NARRATIVE: CASE EVENT DATE: 20240314
